FAERS Safety Report 6608689-3 (Version None)
Quarter: 2010Q1

REPORT INFORMATION
  Report Type: 
  Country: None (occurrence: None)
  Receive Date: 20100301
  Receipt Date: 20100226
  Transmission Date: 20100710
  Serious: Yes (Other)
  Sender: FDA-Public Use
  Company Number: FR-WYE-G05652710

PATIENT
  Sex: Male

DRUGS (6)
  1. TORISEL [Suspect]
     Route: 042
  2. ESIDRIX [Concomitant]
     Indication: HYPERTENSION
     Route: 048
     Dates: start: 20100104
  3. PERINDOPRIL [Concomitant]
     Indication: HYPERTENSION
     Route: 048
     Dates: start: 20100104
  4. AMLODIPINE BESYLATE [Concomitant]
     Indication: HYPERTENSION
     Route: 048
     Dates: start: 20100104
  5. AVASTIN [Suspect]
     Dosage: UNKNOWN
     Route: 042
     Dates: end: 20100201
  6. JANUVIA [Concomitant]
     Indication: DIABETES MELLITUS
     Route: 048
     Dates: start: 20091201

REACTIONS (1)
  - OSTEONECROSIS [None]
